FAERS Safety Report 8228706-7 (Version None)
Quarter: 2012Q1

REPORT INFORMATION
  Report Type: 
  Country: None (occurrence: None)
  Receive Date: 20120322
  Receipt Date: 20120313
  Transmission Date: 20120608
  Serious: Yes (Other)
  Sender: FDA-Public Use
  Company Number: FR-ASTRAZENECA-2012SE17359

PATIENT
  Age: 20809 Day
  Sex: Female

DRUGS (2)
  1. XANAX [Concomitant]
     Route: 048
  2. ZOLMITRIPTAN [Suspect]
     Indication: MIGRAINE WITH AURA
     Route: 048
     Dates: start: 20111108, end: 20111108

REACTIONS (5)
  - LOSS OF CONSCIOUSNESS [None]
  - COLD SWEAT [None]
  - MUSCLE SPASMS [None]
  - PARAESTHESIA [None]
  - TINNITUS [None]
